FAERS Safety Report 5259416-6 (Version None)
Quarter: 2007Q1

REPORT INFORMATION
  Report Type: 
  Country: None (occurrence: None)
  Receive Date: 20070305
  Receipt Date: 20060508
  Transmission Date: 20070707
  Serious: Yes (Hospitalization)
  Sender: FDA-Public Use
  Company Number: 060076

PATIENT
  Age: 81 Year
  Sex: Male

DRUGS (2)
  1. HALFLYTELY [Suspect]
     Indication: COLONOSCOPY
     Dosage: 20 MG, 1X, PO
     Route: 048
     Dates: start: 20060507
  2. PROTONIX [Concomitant]

REACTIONS (5)
  - ABDOMINAL PAIN [None]
  - BLOOD PRESSURE DECREASED [None]
  - COLD SWEAT [None]
  - HEART RATE DECREASED [None]
  - LOSS OF CONSCIOUSNESS [None]
